FAERS Safety Report 9386116 (Version 1)
Quarter: 2013Q3

REPORT INFORMATION
  Report Type: Spontaneous
  Country: US (occurrence: US)
  Receive Date: 20130707
  Receipt Date: 20130707
  Transmission Date: 20140515
  Serious: No
  Sender: FDA-Public Use
  Company Number: US-ALLERGAN-1303825US

PATIENT
  Age: 61 Year
  Sex: Female

DRUGS (5)
  1. LUMIGAN? 0.01% [Suspect]
     Indication: GLAUCOMA
     Dosage: 1 GTT, QHS
     Route: 047
     Dates: start: 201302
  2. LUMIGAN? 0.01% [Suspect]
     Dosage: 2 GTT, QHS
     Route: 047
  3. DAILY VITAMINS [Concomitant]
     Indication: SUPPLEMENTATION THERAPY
     Dosage: UNK
  4. ASPIRIN [Concomitant]
     Indication: MITRAL VALVE PROLAPSE
     Dosage: 81 MG, QD
     Route: 048
  5. TOPICAL CREAM NOS [Concomitant]
     Indication: ECZEMA
     Dosage: UNK, PRN
     Route: 061

REACTIONS (5)
  - Dry eye [Recovered/Resolved]
  - Headache [Recovered/Resolved]
  - Scleral hyperaemia [Recovered/Resolved]
  - Eye pain [Recovered/Resolved]
  - Eye irritation [Not Recovered/Not Resolved]
